FAERS Safety Report 10023912 (Version 2)
Quarter: 2014Q1

REPORT INFORMATION
  Report Type: Spontaneous
  Country: DE (occurrence: None)
  Receive Date: 20140122
  Receipt Date: 20140123
  Transmission Date: 20141002
  Serious: Yes (Other)
  Sender: FDA-Public Use
  Company Number: 7261189

PATIENT
  Age: 35 Year
  Sex: Female

DRUGS (6)
  1. EUTHYROX [Suspect]
     Indication: HYPOTHYROIDISM
     Route: 048
     Dates: start: 20131016
  2. ZELDOX [Suspect]
  3. SERTRALIN [Concomitant]
  4. RISPERDAL [Concomitant]
  5. CHLORMADINONE [Concomitant]
  6. FRISIUM [Concomitant]

REACTIONS (8)
  - Self injurious behaviour [None]
  - Swelling face [None]
  - Blood thyroid stimulating hormone increased [None]
  - Retching [None]
  - General physical health deterioration [None]
  - Diarrhoea [None]
  - Drug interaction [None]
  - Angioedema [None]
